FAERS Safety Report 5807151-5 (Version None)
Quarter: 2008Q3

REPORT INFORMATION
  Report Type: 
  Country: None (occurrence: None)
  Receive Date: 20080711
  Receipt Date: 20080707
  Transmission Date: 20090109
  Serious: Yes (Death, Other)
  Sender: FDA-Public Use
  Company Number: US-AVENTIS-200814164US

PATIENT
  Age: 76 Year
  Sex: Female

DRUGS (2)
  1. LOVENOX [Suspect]
     Indication: ATRIAL FIBRILLATION
     Dosage: DOSE: UNK
  2. COUMADIN [Suspect]
     Dosage: DOSE: UNK

REACTIONS (2)
  - DEATH [None]
  - INTERNATIONAL NORMALISED RATIO INCREASED [None]
